FAERS Safety Report 11321455 (Version 3)
Quarter: 2015Q3

REPORT INFORMATION
  Report Type: Spontaneous
  Country: FR (occurrence: FR)
  Receive Date: 20150729
  Receipt Date: 20150814
  Transmission Date: 20151125
  Serious: Yes (Hospitalization)
  Sender: FDA-Public Use
  Company Number: FR-PFIZER INC-2015240735

PATIENT
  Age: 36 Year
  Sex: Female

DRUGS (2)
  1. NUROFENFLASH [Suspect]
     Active Substance: IBUPROFEN LYSINE
     Dosage: 200 MG, AS NEEDED
     Route: 048
     Dates: end: 20150604
  2. ADVIL [Suspect]
     Active Substance: IBUPROFEN
     Dosage: 200 MG, AS NEEDED
     Route: 048
     Dates: end: 20150604

REACTIONS (2)
  - Stomatitis [Recovering/Resolving]
  - Erythema multiforme [Recovering/Resolving]

NARRATIVE: CASE EVENT DATE: 2014
